FAERS Safety Report 6501570-X (Version None)
Quarter: 2009Q4

REPORT INFORMATION
  Report Type: 
  Country: None (occurrence: None)
  Receive Date: 20091215
  Receipt Date: 20091215
  Transmission Date: 20100525
  Serious: Yes (Hospitalization)
  Sender: FDA-Public Use
  Company Number: None

PATIENT
  Age: 67 Year
  Sex: Male
  Weight: 54.4316 kg

DRUGS (1)
  1. ZOLEDRONIC ACID [Suspect]
     Dosage: 5MG INFUSED OVER 60MIN IV DRIP
     Route: 041
     Dates: start: 20091202, end: 20091202

REACTIONS (1)
  - VISUAL ACUITY REDUCED [None]
